FAERS Safety Report 5194406-3 (Version None)
Quarter: 2006Q4

REPORT INFORMATION
  Report Type: 
  Country: None (occurrence: None)
  Receive Date: 20061222
  Receipt Date: 20061214
  Transmission Date: 20070319
  Serious: Yes (Other)
  Sender: FDA-Public Use
  Company Number: 430010N06FRA

PATIENT
  Age: 58 Year
  Sex: Female

DRUGS (5)
  1. NOVANTRONE [Suspect]
     Dosage: 18.84 MG, 1 IN 1 CYCLE, INTRAVENOUS
     Route: 042
     Dates: start: 20040928, end: 20040928
  2. BROMAZEPAM [Concomitant]
  3. ESOMEPRAZOLE MAGNESIUM [Concomitant]
  4. ACETAMINOPHEN [Concomitant]
  5. TIANEPTINE [Concomitant]

REACTIONS (3)
  - LEUKOPENIA [None]
  - NEUTROPENIA [None]
  - PYREXIA [None]
